FAERS Safety Report 18162527 (Version 1)
Quarter: 2020Q3

REPORT INFORMATION
  Report Type: Spontaneous
  Country: GB (occurrence: GB)
  Receive Date: 20200818
  Receipt Date: 20200818
  Transmission Date: 20201103
  Serious: Yes (Other)
  Sender: FDA-Public Use
  Company Number: GB-TEVA-2020-GB-1815470

PATIENT
  Age: 52 Year
  Sex: Male
  Weight: 89 kg

DRUGS (2)
  1. BIKTARVY [Concomitant]
     Active Substance: BICTEGRAVIR SODIUM\EMTRICITABINE\TENOFOVIR ALAFENAMIDE FUMARATE
     Route: 065
  2. DOXYCYCLINE. [Suspect]
     Active Substance: DOXYCYCLINE
     Indication: LYME DISEASE
     Dosage: 2 DF
     Route: 048
     Dates: start: 20200619, end: 20200710

REACTIONS (7)
  - Pruritus [Not Recovered/Not Resolved]
  - Papule [Not Recovered/Not Resolved]
  - Hyperthermia [Recovered/Resolved]
  - Erythema [Not Recovered/Not Resolved]
  - Hypersensitivity [Unknown]
  - Feeling of body temperature change [Unknown]
  - Chills [Recovered/Resolved]

NARRATIVE: CASE EVENT DATE: 20200629
